FAERS Safety Report 6768764-X (Version None)
Quarter: 2010Q2

REPORT INFORMATION
  Report Type: 
  Country: None (occurrence: None)
  Receive Date: 20100611
  Receipt Date: 20100519
  Transmission Date: 20101027
  Serious: Yes (Death)
  Sender: FDA-Public Use
  Company Number: DKLU1062278

PATIENT
  Age: 10 Year
  Sex: Female

DRUGS (9)
  1. SABRIL [Suspect]
     Indication: MYOCLONIC EPILEPSY
     Dosage: 750 MG MILLIGRAM(S), 2 IN 1 D, ORAL
     Route: 048
  2. VALPROIC ACID [Concomitant]
  3. ATIVAN [Concomitant]
  4. CLONAZEPAM [Concomitant]
  5. PHENYTOIN [Concomitant]
  6. KEPPRA [Concomitant]
  7. GLYCOPYROLATE (GLYCOPYRRONIUM) [Concomitant]
  8. ZANTAC 150 [Concomitant]
  9. LEVOCARNITINE (LEVOCARNITINE) [Concomitant]

REACTIONS (1)
  - DEATH [None]
